FAERS Safety Report 12996527 (Version 1)
Quarter: 2016Q4

REPORT INFORMATION
  Report Type: Spontaneous
  Country: US (occurrence: US)
  Receive Date: 20161204
  Receipt Date: 20161204
  Transmission Date: 20170207
  Serious: Yes (Other)
  Sender: FDA-Public Use
  Company Number: US-GLAXOSMITHKLINE-US2016177357

PATIENT
  Sex: Female

DRUGS (5)
  1. ATORVASTATIN [Concomitant]
     Active Substance: ATORVASTATIN
  2. ADVAIR DISKUS [Suspect]
     Active Substance: FLUTICASONE PROPIONATE\SALMETEROL XINAFOATE
     Indication: ASTHMA
     Dosage: 1 PUFF(S), QD
     Route: 055
     Dates: start: 2006
  3. METFORMIN [Concomitant]
     Active Substance: METFORMIN HYDROCHLORIDE
  4. ASPIRIN. [Concomitant]
     Active Substance: ASPIRIN
  5. GABAPENTIN. [Concomitant]
     Active Substance: GABAPENTIN

REACTIONS (12)
  - Polydipsia [Unknown]
  - Diabetes mellitus [Not Recovered/Not Resolved]
  - Tongue geographic [Not Recovered/Not Resolved]
  - Wrong technique in product usage process [Unknown]
  - Glossodynia [Unknown]
  - Feeding disorder [Recovering/Resolving]
  - Toothache [Recovering/Resolving]
  - Hyponatraemia [Unknown]
  - Mastication disorder [Unknown]
  - Weight decreased [Not Recovered/Not Resolved]
  - Dry mouth [Not Recovered/Not Resolved]
  - Underdose [Unknown]

NARRATIVE: CASE EVENT DATE: 2006
